FAERS Safety Report 6463228-5 (Version None)
Quarter: 2009Q4

REPORT INFORMATION
  Report Type: 
  Country: None (occurrence: None)
  Receive Date: 20091130
  Receipt Date: 20090521
  Transmission Date: 20100525
  Serious: Yes (Hospitalization)
  Sender: FDA-Public Use
  Company Number: US-AMGEN-QUU348236

PATIENT
  Sex: Female

DRUGS (3)
  1. ENBREL [Suspect]
     Indication: RHEUMATOID ARTHRITIS
     Route: 058
     Dates: start: 20031208
  2. PLAQUENIL [Concomitant]
  3. UNSPECIFIED ANTIBIOTIC [Concomitant]

REACTIONS (12)
  - ABDOMINAL DISCOMFORT [None]
  - CELLULITIS [None]
  - CHEST DISCOMFORT [None]
  - CHONDROPATHY [None]
  - FALL [None]
  - FLATULENCE [None]
  - FUNGAL INFECTION [None]
  - IMPAIRED HEALING [None]
  - NAUSEA [None]
  - NECK PAIN [None]
  - RHEUMATOID ARTHRITIS [None]
  - WOUND [None]
